FAERS Safety Report 7437728-5 (Version None)
Quarter: 2011Q2

REPORT INFORMATION
  Report Type: 
  Country: None (occurrence: None)
  Receive Date: 20110426
  Receipt Date: 20110415
  Transmission Date: 20111010
  Serious: Yes (Other)
  Sender: FDA-Public Use
  Company Number: JP-ROCHE-772710

PATIENT
  Sex: Male
  Weight: 50 kg

DRUGS (11)
  1. AVASTIN [Suspect]
     Indication: LUNG ADENOCARCINOMA METASTATIC
     Route: 041
     Dates: start: 20101110, end: 20110112
  2. PACLITAXEL [Concomitant]
     Route: 041
     Dates: start: 20101208, end: 20101215
  3. PACLITAXEL [Concomitant]
     Route: 041
     Dates: start: 20110105, end: 20110112
  4. CARBOPLATIN [Concomitant]
     Route: 041
     Dates: start: 20110105, end: 20110105
  5. MUCOSTA [Concomitant]
     Route: 048
     Dates: start: 20101108, end: 20110129
  6. TAKEPRON [Concomitant]
     Route: 048
     Dates: start: 20101116
  7. MAGMITT [Concomitant]
     Route: 048
     Dates: start: 20101112
  8. LOXONIN [Concomitant]
     Route: 048
     Dates: start: 20101108, end: 20110129
  9. OXYCONTIN [Concomitant]
     Route: 048
     Dates: start: 20101112
  10. PACLITAXEL [Concomitant]
     Route: 041
     Dates: start: 20101110, end: 20101124
  11. CARBOPLATIN [Concomitant]
     Route: 041
     Dates: start: 20101110, end: 20101208

REACTIONS (1)
  - PNEUMOTHORAX [None]
